FAERS Safety Report 23810231 (Version 1)
Quarter: 2024Q2

REPORT INFORMATION
  Report Type: Spontaneous
  Country: US (occurrence: US)
  Receive Date: 20240502
  Receipt Date: 20240502
  Transmission Date: 20240716
  Serious: Yes (Life-Threatening, Hospitalization, Other)
  Sender: FDA-Public Use
  Company Number: US-SANDOZ-SDZ2024US044340

PATIENT
  Age: 49 Year
  Sex: Male

DRUGS (33)
  1. BORTEZOMIB [Suspect]
     Active Substance: BORTEZOMIB
     Indication: Plasma cell myeloma
     Dosage: UNK, CYCLIC (C1W1)
     Route: 065
     Dates: start: 20230927
  2. BORTEZOMIB [Suspect]
     Active Substance: BORTEZOMIB
     Dosage: UNK, CYCLIC (C1W2)
     Route: 065
     Dates: start: 20231003
  3. BORTEZOMIB [Suspect]
     Active Substance: BORTEZOMIB
     Dosage: UNK, CYCLIC (C2W1)
     Route: 065
     Dates: start: 20231018
  4. BORTEZOMIB [Suspect]
     Active Substance: BORTEZOMIB
     Dosage: UNK, CYCLIC (C2W2)
     Route: 065
     Dates: start: 20231024
  5. BORTEZOMIB [Suspect]
     Active Substance: BORTEZOMIB
     Dosage: UNK, CYCLIC (C3W1)
     Route: 065
     Dates: start: 20231107
  6. BORTEZOMIB [Suspect]
     Active Substance: BORTEZOMIB
     Dosage: UNK, CYCLIC (C4W1)
     Route: 065
     Dates: start: 20231121
  7. BORTEZOMIB [Suspect]
     Active Substance: BORTEZOMIB
     Dosage: UNK, CYCLIC (C4W2)
     Route: 065
     Dates: start: 20231128
  8. BORTEZOMIB [Suspect]
     Active Substance: BORTEZOMIB
     Dosage: UNK, CYCLIC (C5W1)
     Route: 065
     Dates: start: 20231212
  9. BORTEZOMIB [Suspect]
     Active Substance: BORTEZOMIB
     Dosage: UNK, CYCLIC (C6W1)
     Route: 065
     Dates: start: 20240103
  10. BORTEZOMIB [Suspect]
     Active Substance: BORTEZOMIB
     Dosage: UNK, CYCLIC (C6W2)
     Route: 065
     Dates: start: 20240110
  11. BORTEZOMIB [Suspect]
     Active Substance: BORTEZOMIB
     Dosage: UNK, CYCLIC (C7W1)
     Route: 065
     Dates: start: 20240124
  12. BORTEZOMIB [Suspect]
     Active Substance: BORTEZOMIB
     Dosage: UNK, CYCLIC (C7W2)
     Route: 065
     Dates: start: 20240131
  13. BORTEZOMIB [Suspect]
     Active Substance: BORTEZOMIB
     Dosage: UNK, CYCLIC (C8W1)
     Route: 065
     Dates: start: 20240214
  14. CYCLOPHOSPHAMIDE [Suspect]
     Active Substance: CYCLOPHOSPHAMIDE
     Indication: Plasma cell myeloma
     Dosage: UNK, CYCLIC (C1W1)
     Route: 065
     Dates: start: 20230927
  15. CYCLOPHOSPHAMIDE [Suspect]
     Active Substance: CYCLOPHOSPHAMIDE
     Dosage: UNK, CYCLIC (C1W2)
     Route: 065
     Dates: start: 20231003
  16. CYCLOPHOSPHAMIDE [Suspect]
     Active Substance: CYCLOPHOSPHAMIDE
     Dosage: UNK, CYCLIC (C3W1)
     Route: 065
     Dates: start: 20231107
  17. CYCLOPHOSPHAMIDE [Suspect]
     Active Substance: CYCLOPHOSPHAMIDE
     Dosage: UNK, CYCLIC (C4W1)
     Route: 065
     Dates: start: 20231121
  18. CYCLOPHOSPHAMIDE [Suspect]
     Active Substance: CYCLOPHOSPHAMIDE
     Dosage: UNK, CYCLIC (C4W2)
     Route: 065
     Dates: start: 20231128
  19. CYCLOPHOSPHAMIDE [Suspect]
     Active Substance: CYCLOPHOSPHAMIDE
     Dosage: UNK, CYCLIC (C5W1)
     Route: 065
     Dates: start: 20231212
  20. CYCLOPHOSPHAMIDE [Suspect]
     Active Substance: CYCLOPHOSPHAMIDE
     Dosage: UNK, CYCLIC (C6W1)
     Route: 065
     Dates: start: 20240103
  21. CYCLOPHOSPHAMIDE [Suspect]
     Active Substance: CYCLOPHOSPHAMIDE
     Dosage: UNK, CYCLIC (C6W2)
     Route: 065
     Dates: start: 20240110
  22. CYCLOPHOSPHAMIDE [Suspect]
     Active Substance: CYCLOPHOSPHAMIDE
     Dosage: UNK, CYCLIC (C7W1)
     Route: 065
     Dates: start: 20240124
  23. CYCLOPHOSPHAMIDE [Suspect]
     Active Substance: CYCLOPHOSPHAMIDE
     Dosage: UNK, CYCLIC (C8W1)
     Route: 065
     Dates: start: 20240214
  24. DARATUMUMAB [Suspect]
     Active Substance: DARATUMUMAB
     Indication: Plasma cell myeloma
     Dosage: UNK
     Route: 065
  25. DEXAMETHASONE [Suspect]
     Active Substance: DEXAMETHASONE
     Indication: Plasma cell myeloma
     Dosage: UNK, CYCLIC (C1W1)
     Route: 065
     Dates: start: 20230927
  26. DEXAMETHASONE [Suspect]
     Active Substance: DEXAMETHASONE
     Dosage: UNK, CYCLIC (C1W2)
     Route: 065
     Dates: start: 20231003
  27. DEXAMETHASONE [Suspect]
     Active Substance: DEXAMETHASONE
     Dosage: UNK, CYCLIC (C3W1)
     Route: 065
     Dates: start: 20231107
  28. DEXAMETHASONE [Suspect]
     Active Substance: DEXAMETHASONE
     Dosage: UNK, CYCLIC (C4W1)
     Route: 065
     Dates: start: 20231121
  29. DEXAMETHASONE [Suspect]
     Active Substance: DEXAMETHASONE
     Dosage: UNK, CYCLIC (C4W2)
     Route: 065
     Dates: start: 20231128
  30. DEXAMETHASONE [Suspect]
     Active Substance: DEXAMETHASONE
     Dosage: UNK, CYCLIC (C5W1)
     Route: 065
     Dates: start: 20231212
  31. DEXAMETHASONE [Suspect]
     Active Substance: DEXAMETHASONE
     Dosage: UNK, CYCLIC (C6W1)
     Route: 065
     Dates: start: 20240103
  32. DEXAMETHASONE [Suspect]
     Active Substance: DEXAMETHASONE
     Dosage: UNK, CYCLIC (C8W1)
     Route: 065
     Dates: start: 20240214
  33. LENALIDOMIDE [Suspect]
     Active Substance: LENALIDOMIDE
     Indication: Plasma cell myeloma
     Dosage: UNK
     Route: 065
     Dates: start: 19990521

REACTIONS (1)
  - Heart failure with reduced ejection fraction [Recovering/Resolving]
